FAERS Safety Report 9760891 (Version 1)
Quarter: 2013Q4

REPORT INFORMATION
  Report Type: Spontaneous
  Country: MY (occurrence: MY)
  Receive Date: 20131216
  Receipt Date: 20131216
  Transmission Date: 20140711
  Serious: Yes (Death, Hospitalization)
  Sender: FDA-Public Use
  Company Number: MY-TEVA-450621ISR

PATIENT
  Age: 55 Year
  Sex: Male

DRUGS (2)
  1. DC; DRUG-ELUTING BEAD DOXORUBICIN [Suspect]
     Indication: HEPATOCELLULAR CARCINOMA
     Dosage: DOXORUBICIN 150MG, TRANSARTERIAL CHEMOEMBOLISATION.
     Route: 013
  2. ULTRAVIST 300 [Concomitant]
     Dosage: 75ML, CONTRAST.
     Route: 065

REACTIONS (1)
  - Tumour lysis syndrome [Fatal]
